FAERS Safety Report 24562048 (Version 1)
Quarter: 2024Q4

REPORT INFORMATION
  Report Type: Spontaneous
  Country: BG (occurrence: BG)
  Receive Date: 20241029
  Receipt Date: 20241029
  Transmission Date: 20250115
  Serious: Yes (Hospitalization, Disabling)
  Sender: ABBVIE
  Company Number: BG-ABBVIE-5979133

PATIENT
  Age: 36 Year
  Sex: Male

DRUGS (4)
  1. HUMIRA [Suspect]
     Active Substance: ADALIMUMAB
     Indication: Colitis ulcerative
     Dosage: DAY 0
     Route: 058
     Dates: start: 202001, end: 202001
  2. HUMIRA [Suspect]
     Active Substance: ADALIMUMAB
     Dosage: DAY 14
     Route: 058
     Dates: start: 2020, end: 2020
  3. HUMIRA [Suspect]
     Active Substance: ADALIMUMAB
     Dosage: THEN 40 MG EVERY 14 DAYS
     Route: 058
     Dates: end: 202304
  4. HUMIRA [Suspect]
     Active Substance: ADALIMUMAB
     Route: 058
     Dates: start: 202304, end: 202308

REACTIONS (8)
  - Asthenia [Unknown]
  - Abdominal pain [Unknown]
  - Rectal polyp [Unknown]
  - Diarrhoea [Unknown]
  - Pyrexia [Unknown]
  - Pseudopolyp [Unknown]
  - Unevaluable event [Unknown]
  - Weight control [Unknown]

NARRATIVE: CASE EVENT DATE: 20230401
